FAERS Safety Report 5793708-7 (Version None)
Quarter: 2008Q2

REPORT INFORMATION
  Report Type: 
  Country: None (occurrence: None)
  Receive Date: 20080601
  Receipt Date: 20080123
  Transmission Date: 20081010
  Serious: No
  Sender: FDA-Public Use
  Company Number: US200801005132

PATIENT
  Age: 71 Year
  Sex: Female

DRUGS (15)
  1. BYETTA [Suspect]
     Indication: TYPE 2 DIABETES MELLITUS
     Dosage: 5 UG, 2/D, SUBCUTANEOUS
     Route: 058
     Dates: start: 20080117
  2. GLUCOPHAGE [Concomitant]
  3. METFORMIN HCL [Concomitant]
  4. ZETIA [Concomitant]
  5. OMEPRAZOLE [Concomitant]
  6. LYRICA [Concomitant]
  7. FEMARA [Concomitant]
  8. COZAAR [Concomitant]
  9. ATENOLOL [Concomitant]
  10. SYNTHROID (LEVOTHYROID SODIUM) [Concomitant]
  11. FEXOFENADINE [Concomitant]
  12. POTASSIUM CHLORIDE [Concomitant]
  13. MULTI-VITAMIN [Concomitant]
  14. METHOTREXATE [Concomitant]
  15. ASPIRIN [Concomitant]

REACTIONS (7)
  - DRUG INEFFECTIVE [None]
  - ERUCTATION [None]
  - FATIGUE [None]
  - INCORRECT DOSE ADMINISTERED [None]
  - INJECTION SITE BRUISING [None]
  - NAUSEA [None]
  - SOMNOLENCE [None]
